FAERS Safety Report 21786238 (Version 2)
Quarter: 2023Q1

REPORT INFORMATION
  Report Type: Spontaneous
  Country: PK (occurrence: PK)
  Receive Date: 20221228
  Receipt Date: 20230302
  Transmission Date: 20230418
  Serious: Yes (Other)
  Sender: FDA-Public Use
  Company Number: PK-NOVOPROD-1004507

PATIENT
  Age: 41 Year
  Sex: Female

DRUGS (2)
  1. NOVORAPID [Suspect]
     Active Substance: INSULIN ASPART
     Indication: Type 2 diabetes mellitus
     Dosage: UNK
     Route: 058
  2. NOVORAPID [Suspect]
     Active Substance: INSULIN ASPART
     Dosage: UNK (NEW DEVICE)
     Route: 058

REACTIONS (3)
  - Urinary tract infection [Unknown]
  - Hyperglycaemia [Recovering/Resolving]
  - Device defective [Unknown]

NARRATIVE: CASE EVENT DATE: 20221001
